FAERS Safety Report 9629558 (Version 1)
Quarter: 2013Q4

REPORT INFORMATION
  Report Type: Spontaneous
  Country: GB (occurrence: GB)
  Receive Date: 20131017
  Receipt Date: 20131017
  Transmission Date: 20140711
  Serious: Yes (Hospitalization)
  Sender: FDA-Public Use
  Company Number: GB-ELI_LILLY_AND_COMPANY-GB201310002699

PATIENT
  Age: 81 Year
  Sex: Male
  Weight: 80 kg

DRUGS (12)
  1. HUMULIN 30% REGULAR, 70% NPH [Suspect]
     Indication: TYPE 1 DIABETES MELLITUS
     Dosage: UNK
     Dates: end: 20130124
  2. HUMULIN 30% REGULAR, 70% NPH [Interacting]
     Dosage: UNK
     Dates: start: 20130125
  3. LINEZOLID [Interacting]
     Dosage: 600 MG, BID
     Route: 048
     Dates: start: 20130108, end: 20130123
  4. CARVEDILOL [Concomitant]
  5. CO-CODAMOL [Concomitant]
  6. DIGOXIN [Concomitant]
  7. FUROSEMIDE [Concomitant]
  8. GLYCERYL TRINITRATE [Concomitant]
  9. METOCLOPRAMIDE [Concomitant]
  10. PRAVASTATIN [Concomitant]
  11. VALSARTAN [Concomitant]
  12. WARFARIN [Concomitant]

REACTIONS (4)
  - Drug interaction [Unknown]
  - Dyskinesia [Unknown]
  - Unresponsive to stimuli [Unknown]
  - Hypoglycaemia [Not Recovered/Not Resolved]
